FAERS Safety Report 7078859-1 (Version None)
Quarter: 2010Q4

REPORT INFORMATION
  Report Type: 
  Country: None (occurrence: None)
  Receive Date: 20101102
  Receipt Date: 20101021
  Transmission Date: 20110411
  Serious: Yes (Death, Other)
  Sender: FDA-Public Use
  Company Number: GB-PFIZER INC-2010130445

PATIENT
  Age: 75 Year
  Sex: Female

DRUGS (14)
  1. ATORVASTATIN CALCIUM [Suspect]
     Indication: HYPERCHOLESTEROLAEMIA
     Dosage: UNK
     Dates: start: 19990101
  2. ARAVA [Suspect]
     Indication: RHEUMATOID ARTHRITIS
     Dosage: 20 MG, 1X/DAY
     Route: 048
  3. CO-CODAMOL [Suspect]
     Indication: RHEUMATOID ARTHRITIS
     Dosage: UNK
  4. LISINOPRIL [Suspect]
     Indication: HYPERTENSION
     Dosage: UNK
     Route: 048
  5. ACETYLSALICYLIC ACID [Suspect]
     Dosage: UNK
  6. GLYCERYL TRINITRATE [Suspect]
     Dosage: UNK
  7. BUDESONIDE [Suspect]
     Indication: ASTHMA
     Dosage: UNK
     Route: 055
  8. QUININE SULFATE [Suspect]
     Indication: MUSCLE SPASMS
     Dosage: UNK
  9. LANSOPRAZOLE [Suspect]
     Indication: DUODENAL ULCER
     Dosage: UNK
  10. DILTIAZEM HYDROCHLORIDE [Suspect]
     Indication: HYPERTENSION
     Dosage: UNK
  11. FENTANYL [Concomitant]
     Dosage: UNK
     Route: 042
  12. MIDAZOLAM [Concomitant]
     Dosage: UNK
     Route: 042
  13. PANCURONIUM BROMIDE [Concomitant]
     Indication: MUSCLE RELAXANT THERAPY
     Dosage: UNK
  14. PROPOFOL [Concomitant]
     Dosage: UNK
     Route: 042

REACTIONS (18)
  - ACUTE HEPATIC FAILURE [None]
  - ASTHMA [None]
  - GASTRIC ULCER [None]
  - GASTROINTESTINAL HAEMORRHAGE [None]
  - HAEMATEMESIS [None]
  - HAEMODIALYSIS [None]
  - HEPATIC CONGESTION [None]
  - HEPATIC ISCHAEMIA [None]
  - HEPATORENAL SYNDROME [None]
  - HEPATOTOXICITY [None]
  - HYPERTENSION [None]
  - HYPOVOLAEMIA [None]
  - LABILE BLOOD PRESSURE [None]
  - MUSCLE SPASMS [None]
  - PAIN [None]
  - POST PROCEDURAL COMPLICATION [None]
  - RENAL FAILURE [None]
  - RHEUMATOID ARTHRITIS [None]
